FAERS Safety Report 16908850 (Version 2)
Quarter: 2019Q4

REPORT INFORMATION
  Report Type: Spontaneous
  Country: CN (occurrence: CN)
  Receive Date: 20191011
  Receipt Date: 20191130
  Transmission Date: 20200122
  Serious: Yes (Other)
  Sender: FDA-Public Use
  Company Number: CN-UCBSA-2019043036

PATIENT
  Age: 7 Year
  Sex: Female

DRUGS (2)
  1. LEVETIRACETAM. [Suspect]
     Active Substance: LEVETIRACETAM
     Indication: PETIT MAL EPILEPSY
     Dosage: 250 MILLIGRAM, 2X/DAY (BID)
     Route: 048
     Dates: start: 2019, end: 2019
  2. LEVETIRACETAM. [Suspect]
     Active Substance: LEVETIRACETAM
     Indication: OFF LABEL USE
     Dosage: 500 MILLIGRAM, 2X/DAY (BID)
     Dates: start: 2019, end: 2019

REACTIONS (3)
  - Off label use [Unknown]
  - Seizure [Recovered/Resolved]
  - Feeling abnormal [Unknown]

NARRATIVE: CASE EVENT DATE: 2019
